FAERS Safety Report 5069975-4 (Version None)
Quarter: 2006Q3

REPORT INFORMATION
  Report Type: 
  Country: None (occurrence: None)
  Receive Date: 20060731
  Receipt Date: 20060720
  Transmission Date: 20061208
  Serious: Yes (Hospitalization)
  Sender: FDA-Public Use
  Company Number: 2006-145888-NL

PATIENT
  Age: 79 Year
  Sex: Female

DRUGS (9)
  1. MIRTAZAPINE [Suspect]
     Indication: DEPRESSION
     Dosage: 30 MG/15 MG,ORAL
     Route: 048
  2. FUROSEMIDE [Suspect]
     Indication: ESSENTIAL HYPERTENSION
     Dosage: 80 MG/40 MG, ORAL
     Route: 048
  3. INDAPAMIDE [Suspect]
     Indication: ESSENTIAL HYPERTENSION
     Dosage: 1.5 MG, ORAL
     Route: 048
     Dates: start: 20060306
  4. PANTOPRAZOLE SODIUM [Concomitant]
  5. VALPROATE SODIUM [Concomitant]
  6. ALENDRONATE SODIUM [Concomitant]
  7. ERGOCALCIFEROL [Concomitant]
  8. MOVICOL [Concomitant]
  9. MORPHINE SULFATE [Concomitant]

REACTIONS (5)
  - ABDOMINAL PAIN [None]
  - DIZZINESS [None]
  - HYPOKALAEMIA [None]
  - HYPONATRAEMIA [None]
  - NAUSEA [None]
